FAERS Safety Report 11489740 (Version 1)
Quarter: 2015Q3

REPORT INFORMATION
  Report Type: Spontaneous
  Country: US (occurrence: US)
  Receive Date: 20150910
  Receipt Date: 20150910
  Transmission Date: 20151125
  Serious: Yes (Hospitalization, Other)
  Sender: FDA-Public Use
  Company Number: US-GLAXOSMITHKLINE-US2015127438

PATIENT
  Sex: Female

DRUGS (1)
  1. VALTREX [Suspect]
     Active Substance: VALACYCLOVIR HYDROCHLORIDE
     Indication: GENITAL HERPES

REACTIONS (8)
  - Speech disorder [Unknown]
  - Psychotic disorder [Unknown]
  - Hallucination [Unknown]
  - Emergency care [Unknown]
  - Abnormal behaviour [Unknown]
  - Hospitalisation [Unknown]
  - Dyskinesia [Unknown]
  - Adverse event [Unknown]
